FAERS Safety Report 8296659-1 (Version None)
Quarter: 2012Q2

REPORT INFORMATION
  Report Type: 
  Country: None (occurrence: None)
  Receive Date: 20120418
  Receipt Date: 20120418
  Transmission Date: 20120825
  Serious: Yes (Other)
  Sender: FDA-Public Use
  Company Number: None

PATIENT
  Age: 62 Year
  Sex: Female
  Weight: 76.203 kg

DRUGS (1)
  1. SINGULAIR [Suspect]
     Indication: ASTHMA
     Dosage: 5 MGM
     Route: 048
     Dates: start: 20120412, end: 20120417

REACTIONS (3)
  - NIGHTMARE [None]
  - SLEEP DISORDER [None]
  - AGITATION [None]
